FAERS Safety Report 7266464-3 (Version None)
Quarter: 2011Q1

REPORT INFORMATION
  Report Type: 
  Country: None (occurrence: None)
  Receive Date: 20110131
  Receipt Date: 20110121
  Transmission Date: 20110831
  Serious: Yes (Other)
  Sender: FDA-Public Use
  Company Number: US-ELI_LILLY_AND_COMPANY-US201011006568

PATIENT
  Sex: Female
  Weight: 79.365 kg

DRUGS (9)
  1. HUMALOG MIX 75/25 [Suspect]
     Indication: DIABETES MELLITUS
     Dosage: 12 U, OTHER
     Dates: start: 20101119
  2. HUMULIN N [Suspect]
  3. HUMALOG MIX 75/25 [Suspect]
     Dosage: 12 U, OTHER
     Dates: start: 20101119
  4. HUMULIN L [Suspect]
     Indication: DIABETES MELLITUS
     Dosage: UNK, UNK
  5. HUMALOG MIX 75/25 [Suspect]
     Dosage: 8 U, EACH EVENING
     Dates: start: 20101119
  6. HUMALOG MIX 75/25 [Suspect]
     Dosage: 8 U, EACH EVENING
     Dates: start: 20101119
  7. METFORMIN [Concomitant]
     Dosage: 500 MG, 2/D
  8. LANTUS [Concomitant]
     Dosage: 20 U, EACH EVENING
  9. HUMALOG [Suspect]
     Indication: DIABETES MELLITUS
     Dosage: 5 U, OTHER

REACTIONS (7)
  - BLOOD GLUCOSE INCREASED [None]
  - DEPRESSED LEVEL OF CONSCIOUSNESS [None]
  - FEELING ABNORMAL [None]
  - WEIGHT DECREASED [None]
  - BLOOD GLUCOSE DECREASED [None]
  - HYPOGLYCAEMIC SEIZURE [None]
  - POOR QUALITY SLEEP [None]
